FAERS Safety Report 8980582 (Version 1)
Quarter: 2012Q4

REPORT INFORMATION
  Report Type: 
  Country: US (occurrence: US)
  Receive Date: 20121221
  Receipt Date: 20121221
  Transmission Date: 20130627
  Serious: Yes (Other)
  Sender: FDA-Public Use
  Company Number: CHPA2012US025431

PATIENT
  Age: 73 Year
  Sex: Female

DRUGS (1)
  1. GAS-X PREVENTION [Suspect]
     Indication: IRRITABLE BOWEL SYNDROME
     Dosage: 1 DF, QD
     Route: 048

REACTIONS (2)
  - Vertigo positional [Not Recovered/Not Resolved]
  - Off label use [Unknown]
